FAERS Safety Report 6954594-2 (Version None)
Quarter: 2010Q3

REPORT INFORMATION
  Report Type: 
  Country: None (occurrence: None)
  Receive Date: 20100829
  Receipt Date: 20100727
  Transmission Date: 20110219
  Serious: No
  Sender: FDA-Public Use
  Company Number: US-ABBOTT-10P-163-0660146-00

PATIENT
  Sex: Female
  Weight: 66.738 kg

DRUGS (8)
  1. NIASPAN [Suspect]
     Indication: BLOOD CHOLESTEROL INCREASED
     Route: 048
     Dates: start: 20100501
  2. NIASPAN [Suspect]
     Route: 048
     Dates: start: 20091201, end: 20100501
  3. TAPAZOLE [Concomitant]
     Indication: HYPERTHYROIDISM
     Route: 048
  4. NOMISAMIDE [Concomitant]
     Indication: MIGRAINE PROPHYLAXIS
     Route: 048
  5. IMIPRAMINE [Concomitant]
     Indication: MIGRAINE PROPHYLAXIS
     Route: 048
  6. IMITREX [Concomitant]
     Indication: MIGRAINE
     Route: 048
  7. CALCIUM [Concomitant]
     Indication: MINERAL SUPPLEMENTATION
     Route: 048
  8. VITAMIN A AND D [Concomitant]
     Indication: VITAMIN SUPPLEMENTATION
     Route: 048

REACTIONS (1)
  - DIARRHOEA [None]
